APPROVED DRUG PRODUCT: CAPECITABINE
Active Ingredient: CAPECITABINE
Strength: 500MG
Dosage Form/Route: TABLET;ORAL
Application: A217237 | Product #002 | TE Code: BX
Applicant: TEYRO LABS PRIVATE LTD
Approved: Oct 23, 2023 | RLD: No | RS: No | Type: RX